FAERS Safety Report 12971548 (Version 4)
Quarter: 2018Q4

REPORT INFORMATION
  Report Type: Spontaneous
  Country: US (occurrence: US)
  Receive Date: 20161123
  Receipt Date: 20181105
  Transmission Date: 20190204
  Serious: No
  Sender: FDA-Public Use
  Company Number: US-JAZZ-2016-US-020026

PATIENT
  Sex: Male

DRUGS (23)
  1. BACTRIM [Concomitant]
     Active Substance: SULFAMETHOXAZOLE\TRIMETHOPRIM
  2. LAMICTAL [Concomitant]
     Active Substance: LAMOTRIGINE
  3. ALEVE [Concomitant]
     Active Substance: NAPROXEN SODIUM
  4. ACETYLSALICYLIC ACID [Concomitant]
     Active Substance: ASPIRIN
  5. SIMVASTATIN. [Concomitant]
     Active Substance: SIMVASTATIN
  6. KERYDIN [Concomitant]
     Active Substance: TAVABOROLE
  7. NASONEX [Concomitant]
     Active Substance: MOMETASONE FUROATE
  8. ERGOCALCIFEROL. [Concomitant]
     Active Substance: ERGOCALCIFEROL
  9. QVAR [Concomitant]
     Active Substance: BECLOMETHASONE DIPROPIONATE
  10. DIPROPHYLLINE [Concomitant]
     Active Substance: DYPHYLLINE
  11. VENTOLIN HFA [Concomitant]
     Active Substance: ALBUTEROL SULFATE
  12. BIFIDOBACTERIUM LACTIS [Concomitant]
     Active Substance: BIFIDOBACTERIUM ANIMALIS LACTIS
  13. XYREM [Suspect]
     Active Substance: SODIUM OXYBATE
     Indication: NARCOLEPSY
     Dosage: 2.25 G, BID
     Route: 048
     Dates: start: 200904, end: 2009
  14. XYREM [Suspect]
     Active Substance: SODIUM OXYBATE
     Dosage: 4.5 G, BID
     Route: 048
     Dates: start: 200906
  15. ALLEGRA ALLERGY [Concomitant]
     Active Substance: FEXOFENADINE HYDROCHLORIDE
  16. MODAFINIL. [Concomitant]
     Active Substance: MODAFINIL
  17. BYSTOLIC [Concomitant]
     Active Substance: NEBIVOLOL HYDROCHLORIDE
  18. PATANASE [Concomitant]
     Active Substance: OLOPATADINE HYDROCHLORIDE
  19. WELLBUTRIN [Concomitant]
     Active Substance: BUPROPION HYDROCHLORIDE
  20. XANAX [Concomitant]
     Active Substance: ALPRAZOLAM
  21. XYREM [Suspect]
     Active Substance: SODIUM OXYBATE
     Dosage: DOSE ADJUSTMENT
     Route: 048
     Dates: start: 200905, end: 2009
  22. NALTREXONE [Concomitant]
     Active Substance: NALTREXONE
  23. FISH OIL [Concomitant]
     Active Substance: FISH OIL

REACTIONS (2)
  - Bronchitis [Unknown]
  - Tendonitis [Recovered/Resolved]
